FAERS Safety Report 24148080 (Version 1)
Quarter: 2024Q3

REPORT INFORMATION
  Report Type: Spontaneous
  Country: US (occurrence: None)
  Receive Date: 20240729
  Receipt Date: 20240729
  Transmission Date: 20241017
  Serious: Yes (Hospitalization)
  Sender: Public
  Company Number: None

PATIENT
  Age: 56 Year
  Sex: Female

DRUGS (1)
  1. MYCOPHENOLIC ACID [Suspect]
     Active Substance: MYCOPHENOLIC ACID
     Indication: Liver transplant
     Dosage: 3 TABLETS BID ORAL?
     Route: 048
     Dates: start: 20240110, end: 20240725

REACTIONS (2)
  - Colitis [None]
  - Disease complication [None]

NARRATIVE: CASE EVENT DATE: 20240726
